FAERS Safety Report 5192959-2 (Version None)
Quarter: 2006Q4

REPORT INFORMATION
  Report Type: 
  Country: None (occurrence: None)
  Receive Date: 20061228
  Receipt Date: 20060322
  Transmission Date: 20070319
  Serious: No
  Sender: FDA-Public Use
  Company Number: US-GLAXOSMITHKLINE-A0598591A

PATIENT
  Sex: Female

DRUGS (6)
  1. FLONASE [Suspect]
     Dosage: 50MCG PER DAY
     Route: 045
  2. CELEBREX [Concomitant]
  3. DIPENTUM [Concomitant]
  4. ASPIRIN [Concomitant]
  5. CALCIUM [Concomitant]
  6. MULTI-VITAMIN [Concomitant]

REACTIONS (2)
  - LACRIMATION INCREASED [None]
  - NASAL DISCOMFORT [None]
